FAERS Safety Report 18066638 (Version 7)
Quarter: 2025Q1

REPORT INFORMATION
  Report Type: Report from Study
  Country: US (occurrence: US)
  Receive Date: 20200724
  Receipt Date: 20250326
  Transmission Date: 20250408
  Serious: Yes (Hospitalization, Other)
  Sender: TAKEDA
  Company Number: US-SHIRE-US202023830

PATIENT
  Sex: Female
  Weight: 63 kg

DRUGS (16)
  1. HUMAN IMMUNOGLOBULIN G [Suspect]
     Active Substance: HUMAN IMMUNOGLOBULIN G
     Indication: Immunodeficiency common variable
     Dosage: 13 GRAM, Q2WEEKS
     Dates: start: 20191122
  2. HUMAN IMMUNOGLOBULIN G [Suspect]
     Active Substance: HUMAN IMMUNOGLOBULIN G
     Dosage: 10 GRAM, Q2WEEKS
  3. HUMAN IMMUNOGLOBULIN G [Suspect]
     Active Substance: HUMAN IMMUNOGLOBULIN G
     Dosage: 8 GRAM, Q2WEEKS
  4. DIPHENHYDRAMINE [Concomitant]
     Active Substance: DIPHENHYDRAMINE
     Indication: Product used for unknown indication
  5. EPINEPHRINE [Concomitant]
     Active Substance: EPINEPHRINE
     Indication: Product used for unknown indication
  6. BACTRIM [Concomitant]
     Active Substance: SULFAMETHOXAZOLE\TRIMETHOPRIM
     Indication: Product used for unknown indication
  7. FLUTICASONE PROPIONATE [Concomitant]
     Active Substance: FLUTICASONE PROPIONATE
  8. ACETAMINOPHEN [Concomitant]
     Active Substance: ACETAMINOPHEN
     Indication: Product used for unknown indication
  9. AMOXICILLIN [Concomitant]
     Active Substance: AMOXICILLIN
     Indication: Product used for unknown indication
  10. Lmx [Concomitant]
  11. ZYRTEC [Concomitant]
     Active Substance: CETIRIZINE HYDROCHLORIDE
  12. FLONASE [Concomitant]
     Active Substance: FLUTICASONE PROPIONATE
  13. DIPHENHYDRAMINE HYDROCHLORIDE [Concomitant]
     Active Substance: DIPHENHYDRAMINE HYDROCHLORIDE
  14. METOPROLOL TARTRATE [Concomitant]
     Active Substance: METOPROLOL TARTRATE
  15. ELIQUIS [Concomitant]
     Active Substance: APIXABAN
  16. ASPIRIN [Concomitant]
     Active Substance: ASPIRIN

REACTIONS (8)
  - Cerebral artery stenosis [Unknown]
  - Transient ischaemic attack [Unknown]
  - Ear infection [Unknown]
  - Allergic sinusitis [Unknown]
  - Insurance issue [Unknown]
  - Dust allergy [Unknown]
  - Sinusitis [Unknown]
  - Pain in extremity [Unknown]
